FAERS Safety Report 20632058 (Version 1)
Quarter: 2022Q1

REPORT INFORMATION
  Report Type: Report from Study
  Country: TW (occurrence: TW)
  Receive Date: 20220324
  Receipt Date: 20220324
  Transmission Date: 20220423
  Serious: Yes (Other)
  Sender: FDA-Public Use
  Company Number: TW-PFIZER INC-202200416859

PATIENT
  Age: 17 Year
  Sex: Male

DRUGS (5)
  1. KETAMINE HYDROCHLORIDE [Suspect]
     Active Substance: KETAMINE HYDROCHLORIDE
     Dosage: UNK
  2. MIDOMAFETAMINE [Suspect]
     Active Substance: MIDOMAFETAMINE
     Dosage: UNK
  3. NITROUS OXIDE [Suspect]
     Active Substance: NITROUS OXIDE
     Dosage: UNK
  4. COFFEE [Suspect]
     Active Substance: ARABICA COFFEE BEAN\COFFEE BEAN
     Dosage: INSTANT COFFEE SACHETS
  5. 4-METHOXYMETHAMPHETAMINE [Suspect]
     Active Substance: 4-METHOXYMETHAMPHETAMINE
     Dosage: UNK

REACTIONS (6)
  - Hallucination, auditory [Unknown]
  - Hallucination, visual [Unknown]
  - Suicide attempt [Unknown]
  - Substance use [Unknown]
  - Depressed mood [Unknown]
  - Aggression [Unknown]
